FAERS Safety Report 14209474 (Version 1)
Quarter: 2017Q4

REPORT INFORMATION
  Report Type: Spontaneous
  Country: US (occurrence: US)
  Receive Date: 20171121
  Receipt Date: 20171121
  Transmission Date: 20180321
  Serious: No
  Sender: FDA-Public Use
  Company Number: US-JNJFOC-20170923548

PATIENT
  Age: 65 Year
  Sex: Female

DRUGS (13)
  1. ONDANSETRON HCL [Concomitant]
     Active Substance: ONDANSETRON HYDROCHLORIDE
     Route: 065
     Dates: start: 20170407
  2. TEMAZEPAM. [Concomitant]
     Active Substance: TEMAZEPAM
     Dosage: FOR 30 DAYS
     Route: 048
  3. GEFITINIB. [Concomitant]
     Active Substance: GEFITINIB
     Route: 065
     Dates: start: 20170407
  4. HYDROMORPHONE [Concomitant]
     Active Substance: HYDROMORPHONE
     Indication: PAIN
     Dosage: ONE TABLET EVERY 4 HOURS AS NEEDED,
     Route: 065
  5. DULCOLAX NOS [Concomitant]
     Active Substance: BISACODYL OR DOCUSATE SODIUM
     Route: 065
  6. XARELTO [Suspect]
     Active Substance: RIVAROXABAN
     Indication: PULMONARY EMBOLISM
     Route: 048
  7. DOXYCYCLINE HYCLATE. [Concomitant]
     Active Substance: DOXYCYCLINE HYCLATE
     Route: 048
  8. HYDROCODONE/ACETAMINOPHEN [Concomitant]
     Active Substance: ACETAMINOPHEN\HYDROCODONE
     Indication: PAIN
     Dosage: 1-2 EVERY 4 HOURS AS NEEDED
     Route: 065
  9. HYDROXYZINE HCL [Concomitant]
     Active Substance: HYDROXYZINE HYDROCHLORIDE
     Dosage: AS NEEDED
     Route: 048
  10. LACTULOSE. [Concomitant]
     Active Substance: LACTULOSE
     Indication: CONSTIPATION
     Dosage: 30 ML DAILY AND ALSO EVERY 8 HOURS AS NEEDED
     Route: 048
  11. LISINOPRIL. [Concomitant]
     Active Substance: LISINOPRIL
     Route: 065
  12. MELOXICAM. [Concomitant]
     Active Substance: MELOXICAM
     Dosage: ONE TABLET EVERY DAY AS DIRECTED
     Route: 065
  13. PANTOPRAZOLE [Concomitant]
     Active Substance: PANTOPRAZOLE
     Dosage: AS DIRECTED FOR 30 DAYS
     Route: 048

REACTIONS (4)
  - Temporomandibular joint syndrome [Unknown]
  - Insomnia [Unknown]
  - Pruritus [Unknown]
  - Vertigo [Unknown]

NARRATIVE: CASE EVENT DATE: 20170702
